FAERS Safety Report 7314397-6 (Version None)
Quarter: 2011Q1

REPORT INFORMATION
  Report Type: 
  Country: None (occurrence: None)
  Receive Date: 20110225
  Receipt Date: 20100813
  Transmission Date: 20110831
  Serious: No
  Sender: FDA-Public Use
  Company Number: US-MYLANLABS-2010S1014628

PATIENT
  Age: 18 Year
  Sex: Male

DRUGS (4)
  1. ADDERALL 10 [Concomitant]
  2. CONCERTA [Concomitant]
  3. AMNESTEEM [Suspect]
     Indication: ACNE
     Route: 048
     Dates: start: 20100401, end: 20100806
  4. AMNESTEEM [Suspect]
     Route: 048
     Dates: start: 20100401, end: 20100806

REACTIONS (2)
  - DEPRESSION [None]
  - MENTAL DISORDER [None]
